FAERS Safety Report 24565989 (Version 3)
Quarter: 2025Q1

REPORT INFORMATION
  Report Type: Report from Study
  Country: TN (occurrence: TN)
  Receive Date: 20241030
  Receipt Date: 20250127
  Transmission Date: 20250409
  Serious: Yes (Other)
  Sender: PFIZER
  Company Number: TN-PFIZER INC-202400289768

PATIENT
  Sex: Male

DRUGS (1)
  1. ENCORAFENIB [Suspect]
     Active Substance: ENCORAFENIB
     Indication: Colorectal cancer metastatic
     Dosage: 300 MG, DAILY

REACTIONS (3)
  - Hepatic necrosis [Unknown]
  - Tumour marker increased [Unknown]
  - Pain [Unknown]
